FAERS Safety Report 8541183-1 (Version None)
Quarter: 2012Q3

REPORT INFORMATION
  Report Type: 
  Country: None (occurrence: None)
  Receive Date: 20120716
  Receipt Date: 20120705
  Transmission Date: 20120928
  Serious: Yes (Hospitalization, Other)
  Sender: FDA-Public Use
  Company Number: DSA_58332_2012

PATIENT

DRUGS (3)
  1. FLECAINIDE ACETATE [Suspect]
     Indication: PRODUCT USED FOR UNKNOWN INDICATION
     Dosage: DF, DF, DAILY, TRANSPLACENTAL
     Route: 064
  2. DILTIAZEM HCL [Suspect]
     Indication: PRODUCT USED FOR UNKNOWN INDICATION
     Dosage: DF TRANSPLACENTAL
     Route: 064
  3. ENOXAPARIN SODIUM [Suspect]
     Indication: PRODUCT USED FOR UNKNOWN INDICATION
     Dosage: 1 MG/KG; TWICE DAILY, TRANSPLACENTAL
     Route: 064

REACTIONS (3)
  - DYSPNOEA [None]
  - PALPITATIONS [None]
  - ATRIAL FLUTTER [None]
